FAERS Safety Report 4269626-2 (Version None)
Quarter: 2004Q1

REPORT INFORMATION
  Report Type: 
  Country: None (occurrence: None)
  Receive Date: 20040112
  Receipt Date: 20040106
  Transmission Date: 20041129
  Serious: Yes (Hospitalization)
  Sender: FDA-Public Use
  Company Number: FR-JNJFOC-20040100648

PATIENT
  Age: 70 Year
  Sex: Male
  Weight: 106 kg

DRUGS (1)
  1. DURAGESIC [Suspect]
     Dosage: 25 UG/HR, 1 IN 3 DAY, TRANSDERMAL
     Route: 062
     Dates: start: 20031103, end: 20031110

REACTIONS (3)
  - DYSPNOEA [None]
  - LOSS OF CONSCIOUSNESS [None]
  - RESPIRATORY FAILURE [None]
